FAERS Safety Report 7999565-2 (Version None)
Quarter: 2011Q4

REPORT INFORMATION
  Report Type: 
  Country: None (occurrence: None)
  Receive Date: 20111221
  Receipt Date: 20111208
  Transmission Date: 20120403
  Serious: Yes (Hospitalization)
  Sender: FDA-Public Use
  Company Number: US-RB-035425-11

PATIENT
  Age: 43 Year
  Sex: Female

DRUGS (8)
  1. VIVITROL [Suspect]
     Route: 030
     Dates: start: 20111116, end: 20111116
  2. NALOXONE [Suspect]
     Indication: DRUG DEPENDENCE
     Dosage: NALOXONE CHALLENGE
     Route: 065
     Dates: start: 20111101, end: 20111101
  3. SUBOXONE [Suspect]
     Dosage: TWO 2 MG OR TWO 8 MG OR PLACEBO FOR AROUND 8 DAYS
     Route: 060
     Dates: start: 20111101, end: 20111101
  4. ALBUTEROL [Concomitant]
     Indication: ASTHMA
     Dosage: DOSE UNKNOWN
     Route: 065
  5. VIVITROL [Suspect]
     Indication: DRUG DEPENDENCE
     Dosage: NALTROXONE INDUCTION
     Route: 048
     Dates: start: 20111116, end: 20111116
  6. STEROIDS [Concomitant]
     Indication: ASTHMA
     Dosage: DOSE UNKNOWN
     Route: 065
  7. SUBOXONE [Suspect]
     Indication: DRUG DEPENDENCE
     Dosage: DOSE UNKNOWN
     Route: 060
     Dates: start: 20111101, end: 20110101
  8. SUBOXONE [Suspect]
     Dosage: 2 MG OR 8 MG OR PLACEBO
     Route: 060
     Dates: start: 20111116, end: 20111117

REACTIONS (2)
  - HYPOKALAEMIA [None]
  - ASTHMA [None]
